FAERS Safety Report 18256665 (Version 2)
Quarter: 2021Q1

REPORT INFORMATION
  Report Type: Report from Study
  Country: MX (occurrence: MX)
  Receive Date: 20200911
  Receipt Date: 20210315
  Transmission Date: 20210419
  Serious: Yes (Other)
  Sender: FDA-Public Use
  Company Number: NVSC2020MX246787

PATIENT
  Age: 63 Year
  Sex: Female
  Weight: 64 kg

DRUGS (4)
  1. GALVUS MET [Suspect]
     Active Substance: METFORMIN HYDROCHLORIDE\VILDAGLIPTIN
     Dosage: 3 DF, QD (50/850 MG)
     Route: 048
     Dates: start: 202009, end: 202009
  2. GALVUS MET [Suspect]
     Active Substance: METFORMIN HYDROCHLORIDE\VILDAGLIPTIN
     Dosage: 1 DF, QD (50/850 MG)
     Route: 048
     Dates: start: 202010
  3. GALVUS MET [Suspect]
     Active Substance: METFORMIN HYDROCHLORIDE\VILDAGLIPTIN
     Dosage: 2 DF, QD (50/850 MG)
     Route: 048
     Dates: start: 202010, end: 202010
  4. GALVUS MET [Suspect]
     Active Substance: METFORMIN HYDROCHLORIDE\VILDAGLIPTIN
     Indication: DIABETES MELLITUS
     Dosage: 1 DF, QD (50/850 MG)
     Route: 048
     Dates: start: 20190906, end: 202009

REACTIONS (8)
  - Extra dose administered [Unknown]
  - Headache [Recovered/Resolved]
  - Stress [Recovered/Resolved]
  - Diabetes mellitus [Unknown]
  - Blood pressure increased [Recovered/Resolved]
  - Blood glucose increased [Recovered/Resolved]
  - Anxiety [Unknown]
  - Off label use [Unknown]

NARRATIVE: CASE EVENT DATE: 20190906
